FAERS Safety Report 21416742 (Version 2)
Quarter: 2022Q4

REPORT INFORMATION
  Report Type: Spontaneous
  Country: US (occurrence: US)
  Receive Date: 20221006
  Receipt Date: 20221102
  Transmission Date: 20230112
  Serious: No
  Sender: FDA-Public Use
  Company Number: None

PATIENT
  Age: 78 Year
  Sex: Male

DRUGS (3)
  1. GUAIFENESIN [Suspect]
     Active Substance: GUAIFENESIN
     Indication: Nasopharyngitis
     Route: 048
     Dates: start: 20220926
  2. GUAIFENESIN [Suspect]
     Active Substance: GUAIFENESIN
     Indication: Lower respiratory tract congestion
  3. GUAIFENESIN [Suspect]
     Active Substance: GUAIFENESIN
     Indication: Productive cough

REACTIONS (4)
  - Dysphagia [Unknown]
  - Product use complaint [Unknown]
  - Product size issue [Unknown]
  - Wrong technique in product usage process [Unknown]

NARRATIVE: CASE EVENT DATE: 20220926
